FAERS Safety Report 25478717 (Version 1)
Quarter: 2025Q2

REPORT INFORMATION
  Report Type: Spontaneous
  Country: US (occurrence: US)
  Receive Date: 20250625
  Receipt Date: 20250625
  Transmission Date: 20250716
  Serious: No
  Sender: MERZ
  Company Number: US-MRZWEB-2025060000057

PATIENT

DRUGS (3)
  1. XEOMIN [Suspect]
     Active Substance: INCOBOTULINUMTOXINA
     Indication: Product used for unknown indication
  2. XEOMIN [Suspect]
     Active Substance: INCOBOTULINUMTOXINA
  3. ESTROGEN NOS [Concomitant]
     Active Substance: ESTROGENS
     Indication: Oestrogen replacement therapy

REACTIONS (1)
  - Injection site hypersensitivity [Recovered/Resolved]
